FAERS Safety Report 5754799-2 (Version None)
Quarter: 2008Q2

REPORT INFORMATION
  Report Type: 
  Country: None (occurrence: None)
  Receive Date: 20080527
  Receipt Date: 20080507
  Transmission Date: 20081010
  Serious: Yes (Hospitalization)
  Sender: FDA-Public Use
  Company Number: 2008AL003939

PATIENT
  Age: 64 Year
  Sex: Male
  Weight: 86.1834 kg

DRUGS (6)
  1. DIGOXIN [Suspect]
     Indication: CARDIAC DISORDER
     Dosage: DAILY PO
     Route: 048
  2. COREG [Concomitant]
  3. PACERI [Concomitant]
  4. PLAVIX [Concomitant]
  5. GLUCOPHAGE [Concomitant]
  6. IMDUR [Concomitant]

REACTIONS (5)
  - CHEST PAIN [None]
  - FATIGUE [None]
  - HYPOTENSION [None]
  - IRRITABILITY [None]
  - PALPITATIONS [None]
